FAERS Safety Report 10654476 (Version 2)
Quarter: 2014Q4

REPORT INFORMATION
  Report Type: Report from Study
  Country: FR (occurrence: FR)
  Receive Date: 20141216
  Receipt Date: 20141229
  Transmission Date: 20150529
  Serious: Yes (Other)
  Sender: FDA-Public Use
  Company Number: FR-ASTELLAS-2014EU014822

PATIENT
  Sex: Male
  Weight: 12 kg

DRUGS (1)
  1. MICAFUNGIN [Suspect]
     Active Substance: MICAFUNGIN
     Indication: ANTIFUNGAL PROPHYLAXIS
     Route: 065
     Dates: start: 20141015, end: 20141031

REACTIONS (3)
  - Pyrexia [Unknown]
  - Intentional product misuse [Unknown]
  - Aplasia [Recovered/Resolved]
